FAERS Safety Report 4755891-1 (Version None)
Quarter: 2005Q3

REPORT INFORMATION
  Report Type: 
  Country: None (occurrence: None)
  Receive Date: 20050830
  Receipt Date: 20050725
  Transmission Date: 20060218
  Serious: No
  Sender: FDA-Public Use
  Company Number: US-BRISTOL-MYERS SQUIBB COMPANY-13049895

PATIENT
  Sex: Male

DRUGS (5)
  1. ERBITUX [Suspect]
     Indication: COLON CANCER
     Route: 042
     Dates: start: 20050719, end: 20050719
  2. KYTRIL [Concomitant]
     Indication: PREMEDICATION
     Dates: start: 20050719, end: 20050719
  3. DECADRON [Concomitant]
     Indication: PREMEDICATION
     Dates: start: 20050719, end: 20050719
  4. BENADRYL [Concomitant]
     Indication: PREMEDICATION
     Dates: start: 20050719, end: 20050719
  5. CPT-11 [Concomitant]
     Indication: PREMEDICATION
     Dates: start: 20050719, end: 20050719

REACTIONS (2)
  - BACK PAIN [None]
  - PAIN IN EXTREMITY [None]
